FAERS Safety Report 7311411-9 (Version None)
Quarter: 2011Q1

REPORT INFORMATION
  Report Type: 
  Country: None (occurrence: None)
  Receive Date: 20110216
  Receipt Date: 20110216
  Transmission Date: 20110831
  Serious: No
  Sender: FDA-Public Use
  Company Number: None

PATIENT
  Age: 49 Year
  Sex: Male
  Weight: 81.6475 kg

DRUGS (1)
  1. OXYCONTIN [Suspect]
     Indication: RADICULAR PAIN
     Dosage: 20MG 2 X DAY PO
     Route: 048
     Dates: start: 20101201, end: 20110214

REACTIONS (5)
  - THERAPEUTIC RESPONSE DECREASED [None]
  - MEDICATION RESIDUE [None]
  - PRODUCT SUBSTITUTION ISSUE [None]
  - NAUSEA [None]
  - WITHDRAWAL SYNDROME [None]
